FAERS Safety Report 9641838 (Version 1)
Quarter: 2013Q4

REPORT INFORMATION
  Report Type: Spontaneous
  Country: US (occurrence: US)
  Receive Date: 20131023
  Receipt Date: 20131023
  Transmission Date: 20140711
  Serious: No
  Sender: FDA-Public Use
  Company Number: US-ENDO PHARMACEUTICALS INC.-RISP20130006

PATIENT
  Sex: Female

DRUGS (1)
  1. RISPERIDONE ORAL SOLUTION 1MG/ML [Suspect]
     Indication: AGITATION
     Route: 048

REACTIONS (2)
  - Insomnia [Unknown]
  - Drug ineffective [Unknown]
